FAERS Safety Report 23494853 (Version 1)
Quarter: 2024Q1

REPORT INFORMATION
  Report Type: Spontaneous
  Country: US (occurrence: None)
  Receive Date: 20240207
  Receipt Date: 20240207
  Transmission Date: 20240410
  Serious: Yes (Hospitalization)
  Sender: FDA-Public Use
  Company Number: None

PATIENT
  Age: 57 Year
  Sex: Male

DRUGS (3)
  1. MYCOPHENOLATE MOFETIL [Suspect]
     Active Substance: MYCOPHENOLATE MOFETIL
     Indication: Heart transplant
     Dosage: FREQUENCY : TWICE A DAY;?
     Route: 048
     Dates: start: 202207
  2. TACROLIMUS (ASCEND) [Concomitant]
  3. SIROLIMUS [Concomitant]

REACTIONS (2)
  - Hospitalisation [None]
  - Therapy change [None]

NARRATIVE: CASE EVENT DATE: 20231201
